FAERS Safety Report 13119054 (Version 1)
Quarter: 2017Q1

REPORT INFORMATION
  Report Type: Spontaneous
  Country: CH (occurrence: CH)
  Receive Date: 20170116
  Receipt Date: 20170116
  Transmission Date: 20170428
  Serious: Yes (Hospitalization)
  Sender: FDA-Public Use
  Company Number: CH-UNICHEM LABORATORIES LIMITED-UCM201701-000008

PATIENT
  Age: 62 Year
  Sex: Male

DRUGS (4)
  1. LAMOTRIGINE. [Suspect]
     Active Substance: LAMOTRIGINE
  2. QUETIAPINE. [Suspect]
     Active Substance: QUETIAPINE
  3. FLECAINIDE [Suspect]
     Active Substance: FLECAINIDE
  4. WARFARIN [Concomitant]
     Active Substance: WARFARIN

REACTIONS (5)
  - Drug interaction [Recovered/Resolved]
  - Intentional overdose [Unknown]
  - Electrocardiogram abnormal [Recovered/Resolved]
  - Atrioventricular block first degree [Unknown]
  - Suicidal ideation [Unknown]
